FAERS Safety Report 9486222 (Version 1)
Quarter: 2013Q3

REPORT INFORMATION
  Report Type: Spontaneous
  Country: US (occurrence: US)
  Receive Date: 20130829
  Receipt Date: 20130829
  Transmission Date: 20140515
  Serious: No
  Sender: FDA-Public Use
  Company Number: US-PFIZER INC-2013239018

PATIENT
  Age: 58 Year
  Sex: Female
  Weight: 77.1 kg

DRUGS (2)
  1. TIKOSYN [Suspect]
     Indication: SINUS RHYTHM
     Dosage: 250 UG, 2X/DAY
     Route: 048
     Dates: start: 20130815
  2. HYDROCHLOROTHIAZIDE [Concomitant]
     Indication: HYPERTENSION
     Dosage: 37.5 MG, UNK

REACTIONS (2)
  - Headache [Unknown]
  - Oral discomfort [Unknown]
